FAERS Safety Report 8895631 (Version 2)
Quarter: 2013Q1

REPORT INFORMATION
  Report Type: Spontaneous
  Country: FR (occurrence: FR)
  Receive Date: 20121108
  Receipt Date: 20130219
  Transmission Date: 20140127
  Serious: Yes (Hospitalization, Other)
  Sender: FDA-Public Use
  Company Number: FR-PFIZER INC-2012276013

PATIENT
  Age: 83 Year
  Sex: Female

DRUGS (9)
  1. TAHOR [Suspect]
     Dosage: 10 MG, DAILY
     Route: 048
     Dates: end: 20120317
  2. EBIXA [Suspect]
     Indication: DEMENTIA ALZHEIMER^S TYPE
     Dosage: 10 MG, TWICE DAILY
     Route: 048
     Dates: start: 201004, end: 20120317
  3. DAFALGAN [Concomitant]
     Indication: PAIN
     Dosage: 1G, THREE TIMES DAILY
     Route: 048
  4. LOVENOX [Concomitant]
     Indication: THROMBOSIS PROPHYLAXIS
     Dosage: UNK
     Route: 058
     Dates: start: 201202, end: 20120329
  5. TEMERIT [Concomitant]
     Indication: HYPERTENSION
     Dosage: 2.5 MG, DAILY
     Route: 048
  6. SPECIAFOLDINE [Concomitant]
     Indication: VITAMIN B COMPLEX DEFICIENCY
     Dosage: 5 MG, THREE TIMES DAILY
     Route: 048
  7. CALCIDOSE VITAMINE D [Concomitant]
     Indication: VITAMIN SUPPLEMENTATION
     Dosage: 500 MG, TWO TIMES DAILY
     Route: 048
  8. LEXOMIL [Concomitant]
     Indication: ANXIETY
     Dosage: 0.5 DF, DAILY
     Route: 048
  9. INEXIUM [Concomitant]
     Indication: GASTRITIS
     Dosage: 20 MG, DAILY
     Route: 048
     Dates: start: 20120222

REACTIONS (5)
  - Transaminases increased [Recovered/Resolved]
  - Gamma-glutamyltransferase increased [Recovered/Resolved]
  - Blood alkaline phosphatase increased [Recovered/Resolved]
  - Bipolar disorder [Unknown]
  - Malnutrition [Unknown]
